FAERS Safety Report 5041213-8 (Version None)
Quarter: 2006Q3

REPORT INFORMATION
  Report Type: 
  Country: None (occurrence: None)
  Receive Date: 20060703
  Receipt Date: 20060508
  Transmission Date: 20061208
  Serious: Yes (Hospitalization)
  Sender: FDA-Public Use
  Company Number: GB-GLAXOSMITHKLINE-B0422919A

PATIENT
  Age: 60 Year
  Sex: Male

DRUGS (9)
  1. COMBIVIR [Suspect]
     Route: 048
  2. KALETRA [Concomitant]
     Route: 048
  3. TRUVADA [Concomitant]
     Route: 048
  4. DOSULEPIN [Concomitant]
     Route: 048
  5. ASPIRIN [Concomitant]
     Route: 048
  6. TAMSULOSIN HCL [Concomitant]
     Route: 048
  7. OXYBUTYNIN [Concomitant]
     Route: 048
  8. OLANZAPINE [Concomitant]
     Route: 048
  9. COTRIMOXAZOLE ORAL [Concomitant]
     Route: 048

REACTIONS (2)
  - ANAEMIA [None]
  - METHAEMOGLOBINAEMIA [None]
